FAERS Safety Report 13973565 (Version 1)
Quarter: 2017Q3

REPORT INFORMATION
  Report Type: Spontaneous
  Country: IT (occurrence: IT)
  Receive Date: 20170915
  Receipt Date: 20170915
  Transmission Date: 20171128
  Serious: Yes (Other)
  Sender: FDA-Public Use
  Company Number: PHHY2017IT134342

PATIENT
  Age: 55 Year
  Sex: Male
  Weight: 74 kg

DRUGS (4)
  1. FLUOROURACIL. [Suspect]
     Active Substance: FLUOROURACIL
     Indication: ADENOCARCINOMA OF COLON
     Dosage: 760 MG, CYCLIC
     Route: 040
     Dates: start: 20161207
  2. FLUOROURACIL. [Suspect]
     Active Substance: FLUOROURACIL
     Dosage: 4500 MG, CYCLIC
     Route: 042
     Dates: start: 20161207
  3. OXALIPLATIN. [Suspect]
     Active Substance: OXALIPLATIN
     Indication: ADENOCARCINOMA OF COLON
     Dosage: 380 MG, CYCLIC
     Route: 042
     Dates: start: 20161207
  4. LEVOFOLIC [Concomitant]
     Active Substance: LEUCOVORIN
     Indication: ADENOCARCINOMA OF COLON
     Dosage: 380 MG, UNK
     Route: 042
     Dates: start: 20161207

REACTIONS (1)
  - Hypertriglyceridaemia [Unknown]

NARRATIVE: CASE EVENT DATE: 20170113
